FAERS Safety Report 20884002 (Version 1)
Quarter: 2022Q2

REPORT INFORMATION
  Report Type: Report from Study
  Country: IT (occurrence: IT)
  Receive Date: 20220527
  Receipt Date: 20220527
  Transmission Date: 20220721
  Serious: Yes (Death)
  Sender: FDA-Public Use
  Company Number: None

PATIENT
  Age: 59 Year
  Sex: Male

DRUGS (2)
  1. AMLODIPINE [Suspect]
     Active Substance: AMLODIPINE BESYLATE
     Indication: Completed suicide
     Dosage: UNIT DOSE: 200 DF, AMLODIPINE TEVA ITALIA 5 MG, ABUSE / MISUSE
     Dates: start: 20220318, end: 20220318
  2. MONTELUKAST SODIUM [Concomitant]
     Active Substance: MONTELUKAST SODIUM

REACTIONS (3)
  - Cardiogenic shock [Fatal]
  - Suicidal ideation [Fatal]
  - Completed suicide [Fatal]

NARRATIVE: CASE EVENT DATE: 20220318
